FAERS Safety Report 14349799 (Version 6)
Quarter: 2018Q2

REPORT INFORMATION
  Report Type: Spontaneous
  Country: US (occurrence: US)
  Receive Date: 20180104
  Receipt Date: 20180522
  Transmission Date: 20180711
  Serious: Yes (Congenital Anomaly, Other)
  Sender: FDA-Public Use
  Company Number: PHEH2018US000461

PATIENT
  Sex: Female

DRUGS (6)
  1. ONDANSETRON DR REDDY [Suspect]
     Active Substance: ONDANSETRON
     Indication: FOETAL EXPOSURE DURING PREGNANCY
     Dosage: MOTHER^S DOSE: 08 MG, UNK
     Route: 064
  2. ZOFRAN [Suspect]
     Active Substance: ONDANSETRON HYDROCHLORIDE
     Indication: FOETAL EXPOSURE DURING PREGNANCY
     Dosage: MOTHER DOSE: 01 DF, Q8H
     Route: 064
  3. ONDANSETRON HYDROCHLORIDE. [Suspect]
     Active Substance: ONDANSETRON HYDROCHLORIDE
     Indication: FOETAL EXPOSURE DURING PREGNANCY
     Dosage: MOTHER^S DOSE: 08 MG, PRN
     Route: 064
  4. ZOFRAN [Suspect]
     Active Substance: ONDANSETRON HYDROCHLORIDE
     Indication: FOETAL EXPOSURE DURING PREGNANCY
     Dosage: MOTHER DOSE: 04 MG, QD
     Route: 064
  5. ONDANSETRON HYDROCHLORIDE. [Suspect]
     Active Substance: ONDANSETRON HYDROCHLORIDE
     Indication: FOETAL EXPOSURE DURING PREGNANCY
     Dosage: MOTHER^S DOSE: 04 MG, PRN
     Route: 064
  6. ONDANSETRON HYDROCHLORIDE. [Suspect]
     Active Substance: ONDANSETRON HYDROCHLORIDE
     Indication: FOETAL EXPOSURE DURING PREGNANCY
     Dosage: MOTHER^S DOSE: 04 MG, Q8H
     Route: 064

REACTIONS (35)
  - Foetal exposure during pregnancy [Unknown]
  - Dizziness [Unknown]
  - Oropharyngeal pain [Unknown]
  - Dermatitis atopic [Unknown]
  - Ear pain [Unknown]
  - Headache [Unknown]
  - Decreased appetite [Unknown]
  - Anaemia [Unknown]
  - Diarrhoea [Unknown]
  - Pyrexia [Unknown]
  - Rhinorrhoea [Unknown]
  - Fatigue [Unknown]
  - Pulmonary valve stenosis [Unknown]
  - Deafness [Unknown]
  - Injury [Unknown]
  - Nausea [Unknown]
  - Premature baby [Unknown]
  - Abdominal pain [Unknown]
  - Tinnitus [Unknown]
  - Sneezing [Unknown]
  - Conjunctivitis [Unknown]
  - Asthma [Unknown]
  - Dermatitis diaper [Unknown]
  - Atrial septal defect [Unknown]
  - Left-to-right cardiac shunt [Unknown]
  - Congenital small intestinal atresia [Unknown]
  - Rhinitis allergic [Unknown]
  - Pharyngitis [Unknown]
  - Cough [Unknown]
  - Jaundice cholestatic [Unknown]
  - Facial paralysis [Unknown]
  - Vomiting [Unknown]
  - Upper respiratory tract infection [Unknown]
  - Chills [Unknown]
  - Ear haemorrhage [Unknown]
